FAERS Safety Report 8909465 (Version 1)
Quarter: 2012Q4

REPORT INFORMATION
  Report Type: 
  Country: US (occurrence: US)
  Receive Date: 20121114
  Receipt Date: 20121114
  Transmission Date: 20130627
  Serious: No
  Sender: FDA-Public Use
  Company Number: US-009507513-1211USA004818

PATIENT

DRUGS (2)
  1. JANUVIA [Suspect]
     Dosage: 100 mg, qd
     Route: 048
     Dates: start: 20120810, end: 20120827
  2. METFORMIN [Concomitant]

REACTIONS (2)
  - Lipase increased [Recovered/Resolved]
  - Amylase increased [Recovered/Resolved]
